FAERS Safety Report 7189470-6 (Version None)
Quarter: 2010Q4

REPORT INFORMATION
  Report Type: 
  Country: None (occurrence: None)
  Receive Date: 20101223
  Receipt Date: 20101214
  Transmission Date: 20110411
  Serious: Yes (Hospitalization)
  Sender: FDA-Public Use
  Company Number: US-BIOGENIDEC-2010BI034904

PATIENT
  Age: 45 Year
  Sex: Female

DRUGS (2)
  1. TYSABRI [Suspect]
     Indication: MULTIPLE SCLEROSIS
     Route: 042
     Dates: start: 20071226, end: 20100928
  2. AVONEX [Concomitant]
     Indication: MULTIPLE SCLEROSIS

REACTIONS (10)
  - BACK INJURY [None]
  - DRUG TOLERANCE DECREASED [None]
  - MENTAL IMPAIRMENT [None]
  - MOOD SWINGS [None]
  - NIGHT SWEATS [None]
  - PAIN IN EXTREMITY [None]
  - ROAD TRAFFIC ACCIDENT [None]
  - SUICIDAL IDEATION [None]
  - SUICIDE ATTEMPT [None]
  - THINKING ABNORMAL [None]
